FAERS Safety Report 7816709-3 (Version None)
Quarter: 2011Q4

REPORT INFORMATION
  Report Type: 
  Country: None (occurrence: None)
  Receive Date: 20111017
  Receipt Date: 20111012
  Transmission Date: 20120403
  Serious: No
  Sender: FDA-Public Use
  Company Number: US-PFIZER INC-2011224442

PATIENT
  Sex: Male

DRUGS (7)
  1. GENOTROPIN [Suspect]
     Dosage: 1.6 MG, DAILY
     Route: 058
     Dates: start: 20110606, end: 20110822
  2. DDAVP [Concomitant]
     Dosage: UNK
  3. CORTEF [Concomitant]
     Dosage: UNK
  4. PRILOSEC [Concomitant]
     Dosage: UNK
  5. SYNTHROID [Concomitant]
     Dosage: UNK
  6. NORTRIPTYLINE [Concomitant]
     Dosage: UNK
  7. GENOTROPIN [Suspect]
     Dosage: 0.8 MG, 1X/DAY (0.01 MG/KG/DAY)
     Route: 058
     Dates: start: 20111001, end: 20111003

REACTIONS (3)
  - NAUSEA [None]
  - VOMITING [None]
  - PAIN [None]
